FAERS Safety Report 6215466-4 (Version None)
Quarter: 2009Q2

REPORT INFORMATION
  Report Type: 
  Country: None (occurrence: None)
  Receive Date: 20090603
  Receipt Date: 20090518
  Transmission Date: 20091009
  Serious: Yes (Hospitalization)
  Sender: FDA-Public Use
  Company Number: STI-2009-01052

PATIENT
  Age: 14 Year
  Sex: Male

DRUGS (1)
  1. DUAC [Suspect]
     Dosage: TOPICAL
     Route: 061

REACTIONS (8)
  - CONFUSIONAL STATE [None]
  - DISORIENTATION [None]
  - DYSPNOEA [None]
  - HEART RATE IRREGULAR [None]
  - MIGRAINE [None]
  - MYDRIASIS [None]
  - NEUROPATHY PERIPHERAL [None]
  - VOMITING [None]
